FAERS Safety Report 5731750-2 (Version None)
Quarter: 2008Q2

REPORT INFORMATION
  Report Type: 
  Country: None (occurrence: None)
  Receive Date: 20080506
  Receipt Date: 20080506
  Transmission Date: 20081010
  Serious: Yes (Other)
  Sender: FDA-Public Use
  Company Number: None

PATIENT
  Sex: Male
  Weight: 47.6277 kg

DRUGS (1)
  1. SINGULAIR [Suspect]
     Indication: SEASONAL ALLERGY
     Dosage: 1 PILL -MELT IN MOUTH- ONCE DAILY - I THINK PO
     Route: 048
     Dates: start: 19990301, end: 20080301

REACTIONS (4)
  - ANGER [None]
  - ANXIETY [None]
  - DEPRESSION [None]
  - FEELING ABNORMAL [None]
